FAERS Safety Report 16690480 (Version 1)
Quarter: 2019Q3

REPORT INFORMATION
  Report Type: Spontaneous
  Country: US (occurrence: US)
  Receive Date: 20190810
  Receipt Date: 20190810
  Transmission Date: 20191004
  Serious: No
  Sender: FDA-Public Use
  Company Number: PHEH2019US032078

PATIENT
  Age: 24 Year
  Sex: Female

DRUGS (1)
  1. MAYZENT [Suspect]
     Active Substance: SIPONIMOD
     Indication: SECONDARY PROGRESSIVE MULTIPLE SCLEROSIS
     Dosage: 0.75 MG, QD
     Route: 048
     Dates: start: 20190727, end: 20190730

REACTIONS (3)
  - Heart rate decreased [Unknown]
  - Dizziness [Unknown]
  - Nervousness [Unknown]

NARRATIVE: CASE EVENT DATE: 20190730
